FAERS Safety Report 7565031-1 (Version None)
Quarter: 2011Q2

REPORT INFORMATION
  Report Type: 
  Country: None (occurrence: None)
  Receive Date: 20110622
  Receipt Date: 20110406
  Transmission Date: 20111010
  Serious: Yes (Death)
  Sender: FDA-Public Use
  Company Number: US-MYLANLABS-2011S1007237

PATIENT
  Age: 71 Year
  Sex: Male

DRUGS (6)
  1. CLOZAPINE [Suspect]
     Route: 048
  2. CELEBREX [Concomitant]
  3. COGENTIN [Concomitant]
  4. CLOZAPINE [Suspect]
     Route: 048
  5. FLUPHENAZINE [Concomitant]
  6. AMLODIPINE [Concomitant]

REACTIONS (1)
  - LUNG NEOPLASM MALIGNANT [None]
